FAERS Safety Report 8575784-1 (Version None)
Quarter: 2012Q2

REPORT INFORMATION
  Report Type: 
  Country: None (occurrence: None)
  Receive Date: 20120423
  Receipt Date: 20091203
  Transmission Date: 20120825
  Serious: Yes (Other)
  Sender: FDA-Public Use
  Company Number: PHEH2009US16508

PATIENT
  Age: 44 Year
  Sex: Female

DRUGS (1)
  1. EXJADE [Suspect]
     Indication: SICKLE CELL ANAEMIA
     Dosage: 1000 MG DAILY, ORAL
     Route: 048
     Dates: start: 20091028

REACTIONS (3)
  - SICKLE CELL ANAEMIA WITH CRISIS [None]
  - NAUSEA [None]
  - ALOPECIA [None]
